FAERS Safety Report 9707881 (Version 1)
Quarter: 2013Q4

REPORT INFORMATION
  Report Type: Spontaneous
  Country: US (occurrence: None)
  Receive Date: 20131122
  Receipt Date: 20131122
  Transmission Date: 20140711
  Serious: Yes (Other)
  Sender: FDA-Public Use
  Company Number: None

PATIENT
  Age: 64 Year
  Sex: Female
  Weight: 51.2 kg

DRUGS (16)
  1. BUTORPHANOL TARTRATE [Suspect]
     Indication: PRURITUS
     Route: 042
     Dates: start: 20131107, end: 20131107
  2. BUTORPHANOL TARTRATE [Suspect]
     Route: 042
     Dates: start: 20131107, end: 20131107
  3. ASCORBIC ACID [Concomitant]
  4. ASPIRIN [Concomitant]
  5. CALCIUM [Concomitant]
  6. VITAMIN D [Concomitant]
  7. DIPHENHYDRAMINE [Concomitant]
  8. DOCUSATE [Concomitant]
  9. ESOMEPRAZOLE [Concomitant]
  10. FENOFIBRATE [Concomitant]
  11. FERROUS SULFATE [Concomitant]
  12. GABAPENTIN [Concomitant]
  13. KETEROLAC [Concomitant]
  14. LOVASTATIN [Concomitant]
  15. NALOXONE [Concomitant]
  16. OXYCODONE [Concomitant]

REACTIONS (4)
  - Malaise [None]
  - Dizziness [None]
  - Dysphagia [None]
  - Disorientation [None]
